FAERS Safety Report 13138369 (Version 1)
Quarter: 2017Q1

REPORT INFORMATION
  Report Type: Spontaneous
  Country: US (occurrence: US)
  Receive Date: 20170123
  Receipt Date: 20170123
  Transmission Date: 20170428
  Serious: Yes (Other)
  Sender: FDA-Public Use
  Company Number: None

PATIENT
  Sex: Female

DRUGS (11)
  1. ALBUTEROL. [Concomitant]
     Active Substance: ALBUTEROL
  2. GLIPIZIDE. [Concomitant]
     Active Substance: GLIPIZIDE
  3. LASIX [Concomitant]
     Active Substance: FUROSEMIDE
  4. SINGULAI [Concomitant]
  5. GABAPENTIN. [Concomitant]
     Active Substance: GABAPENTIN
  6. VITAMIN D [Concomitant]
     Active Substance: CHOLECALCIFEROL
  7. PREDNISONE. [Concomitant]
     Active Substance: PREDNISONE
  8. ENALAPRIL [Concomitant]
     Active Substance: ENALAPRIL
  9. PEPCID [Concomitant]
     Active Substance: FAMOTIDINE
  10. NUCALA [Suspect]
     Active Substance: MEPOLIZUMAB
     Indication: ASTHMA
     Dosage: 100MG Q28D SQ
     Route: 058
     Dates: start: 20160803
  11. PROMETHAZINE/CODEINE SYP [Concomitant]

REACTIONS (3)
  - Lung disorder [None]
  - Condition aggravated [None]
  - PCO2 increased [None]

NARRATIVE: CASE EVENT DATE: 2017
